FAERS Safety Report 5309680-X (Version None)
Quarter: 2007Q2

REPORT INFORMATION
  Report Type: 
  Country: None (occurrence: None)
  Receive Date: 20070427
  Receipt Date: 20061117
  Transmission Date: 20071010
  Serious: No
  Sender: FDA-Public Use
  Company Number: US-GLAXOSMITHKLINE-A0627934A

PATIENT
  Age: 42 Year
  Sex: Female

DRUGS (4)
  1. DEXEDRINE [Suspect]
     Indication: NARCOLEPSY
     Route: 048
  2. DEXTROAMPHETAMINE SULFATE [Suspect]
     Indication: NARCOLEPSY
     Route: 048
  3. CYMBALTA [Concomitant]
  4. LEVOTHYROXINE SODIUM [Concomitant]

REACTIONS (4)
  - DRUG INEFFECTIVE [None]
  - HEADACHE [None]
  - PALPITATIONS [None]
  - SOMNOLENCE [None]
